FAERS Safety Report 19086926 (Version 2)
Quarter: 2021Q2

REPORT INFORMATION
  Report Type: Spontaneous
  Country: JP (occurrence: JP)
  Receive Date: 20210402
  Receipt Date: 20210416
  Transmission Date: 20210717
  Serious: Yes (Hospitalization, Other)
  Sender: FDA-Public Use
  Company Number: JP-ASTRAZENECA-2021A208721

PATIENT
  Age: 41 Year
  Sex: Female

DRUGS (1)
  1. FORXIGA [Suspect]
     Active Substance: DAPAGLIFLOZIN
     Indication: TYPE 2 DIABETES MELLITUS
     Dosage: DOSE UNKNOWN
     Route: 048
     Dates: start: 201703

REACTIONS (3)
  - Urinary tract infection [Recovering/Resolving]
  - Diabetic ketoacidosis [Recovering/Resolving]
  - Insulin resistance [Recovering/Resolving]

NARRATIVE: CASE EVENT DATE: 2017
